FAERS Safety Report 4531427-5 (Version None)
Quarter: 2004Q4

REPORT INFORMATION
  Report Type: 
  Country: None (occurrence: None)
  Receive Date: 20041217
  Receipt Date: 20041208
  Transmission Date: 20050328
  Serious: Yes (Other)
  Sender: FDA-Public Use
  Company Number: 2004058577

PATIENT
  Age: 61 Year
  Sex: Female
  Weight: 104.3273 kg

DRUGS (11)
  1. NEOSPORIN [Suspect]
     Indication: DRY SOCKET
     Dosage: ONCE, ORAL
     Route: 048
     Dates: start: 20040526, end: 20040526
  2. GELFOAM [Suspect]
     Indication: DRY SOCKET
     Dosage: ONCE, ORAL
     Route: 048
     Dates: start: 20040526, end: 20040526
  3. POTASSIUM (POTASSIUM) [Concomitant]
  4. CONJUGATED ESTROGENS [Concomitant]
  5. VENLAFAXINE HCL [Concomitant]
  6. VERAPAMIL [Concomitant]
  7. VALDECOXIB [Concomitant]
  8. ALENDRONATE SODIUM [Concomitant]
  9. LORATADINE [Concomitant]
  10. PRINZIDE [Concomitant]
  11. FUROSEMIDE [Concomitant]

REACTIONS (6)
  - GINGIVAL ABSCESS [None]
  - GINGIVAL HYPERPLASIA [None]
  - GRANULOMA [None]
  - MEDICATION ERROR [None]
  - OSTEONECROSIS [None]
  - POSTOPERATIVE WOUND COMPLICATION [None]
